FAERS Safety Report 12294297 (Version 1)
Quarter: 2016Q2

REPORT INFORMATION
  Report Type: Spontaneous
  Country: FR (occurrence: FR)
  Receive Date: 20160422
  Receipt Date: 20160422
  Transmission Date: 20160815
  Serious: Yes (Death)
  Sender: FDA-Public Use
  Company Number: FR-SUN PHARMACEUTICAL INDUSTRIES LTD-2016RR-115292

PATIENT
  Sex: Female

DRUGS (5)
  1. ATRACURIUM [Suspect]
     Active Substance: ATRACURIUM
     Indication: COMPLETED SUICIDE
     Route: 065
  2. AMIODARONE [Suspect]
     Active Substance: AMIODARONE
     Indication: COMPLETED SUICIDE
     Route: 065
  3. MIDAZOLAM [Suspect]
     Active Substance: MIDAZOLAM\MIDAZOLAM HYDROCHLORIDE
     Indication: COMPLETED SUICIDE
     Route: 065
  4. PROPOFOL. [Suspect]
     Active Substance: PROPOFOL
     Indication: COMPLETED SUICIDE
     Route: 065
  5. CISATRACURIUM. [Suspect]
     Active Substance: CISATRACURIUM
     Indication: COMPLETED SUICIDE
     Route: 065

REACTIONS (5)
  - Toxicity to various agents [Fatal]
  - Coma [Fatal]
  - Respiratory failure [Fatal]
  - Cardiogenic shock [Fatal]
  - Hypotension [Fatal]
